FAERS Safety Report 9263075 (Version 1)
Quarter: 2013Q2

REPORT INFORMATION
  Report Type: Spontaneous
  Country: MY (occurrence: MY)
  Receive Date: 20130430
  Receipt Date: 20130430
  Transmission Date: 20140414
  Serious: Yes (Death)
  Sender: FDA-Public Use
  Company Number: MY-ROCHE-1219432

PATIENT
  Age: 71 Year
  Sex: Female

DRUGS (3)
  1. ROCEPHIN [Suspect]
     Indication: NOSOCOMIAL INFECTION
     Route: 042
     Dates: start: 20120210
  2. MERONEM [Suspect]
     Indication: NOSOCOMIAL INFECTION
     Route: 042
     Dates: start: 20120210
  3. DOXYCYCLINE [Concomitant]

REACTIONS (3)
  - Jaundice [Fatal]
  - Thrombocytopenia [Fatal]
  - Rash maculo-papular [Fatal]
